FAERS Safety Report 23914450 (Version 2)
Quarter: 2024Q2

REPORT INFORMATION
  Report Type: Spontaneous
  Country: RO (occurrence: RO)
  Receive Date: 20240529
  Receipt Date: 20240626
  Transmission Date: 20240715
  Serious: Yes (Other)
  Sender: FDA-Public Use
  Company Number: RO-SUN PHARMACEUTICAL INDUSTRIES LTD-2024R1-447988

PATIENT
  Age: 76 Year
  Sex: Male

DRUGS (1)
  1. TRIAMCINOLONE [Suspect]
     Active Substance: TRIAMCINOLONE
     Indication: Product used for unknown indication
     Dosage: 40 MILLIGRAM PER MILLILITRE

REACTIONS (5)
  - Non-infectious endophthalmitis [Unknown]
  - Intraocular lens implant [Unknown]
  - Diabetic retinal oedema [Unknown]
  - Hypermetropia [Unknown]
  - Presbyopia [Unknown]
